FAERS Safety Report 25238141 (Version 1)
Quarter: 2025Q2

REPORT INFORMATION
  Report Type: Spontaneous
  Country: CN (occurrence: CN)
  Receive Date: 20250425
  Receipt Date: 20250425
  Transmission Date: 20250717
  Serious: Yes (Other)
  Sender: CHEPLAPHARM
  Company Number: CN-CHEPLA-2025005200

PATIENT
  Age: 60 Year
  Sex: Female
  Weight: 48.5 kg

DRUGS (2)
  1. OLANZAPINE [Suspect]
     Active Substance: OLANZAPINE
     Indication: Psychotic disorder
     Dosage: 5 MG BID; APPROVAL NUMBER: H20160497??DAILY DOSE: 10 MILLIGRAM
     Route: 048
     Dates: start: 20250409, end: 20250414
  2. ARIPIPRAZOLE [Concomitant]
     Active Substance: ARIPIPRAZOLE

REACTIONS (3)
  - Hypotension [Recovering/Resolving]
  - Dizziness [Recovering/Resolving]
  - Sinus bradycardia [Recovering/Resolving]

NARRATIVE: CASE EVENT DATE: 20250414
